FAERS Safety Report 18305721 (Version 22)
Quarter: 2023Q2

REPORT INFORMATION
  Report Type: Spontaneous
  Country: CA (occurrence: CA)
  Receive Date: 20200924
  Receipt Date: 20230622
  Transmission Date: 20230722
  Serious: Yes (Other)
  Sender: FDA-Public Use
  Company Number: CA-CELLTRION INC.-2020CA027373

PATIENT

DRUGS (18)
  1. INFLECTRA [Suspect]
     Active Substance: INFLIXIMAB-DYYB
     Indication: Colitis ulcerative
     Dosage: 400 MG, 2, 6 WEEKS EVERY 8 WEEKS
     Route: 042
     Dates: start: 20200817
  2. INFLECTRA [Suspect]
     Active Substance: INFLIXIMAB-DYYB
     Dosage: 400 MG  2, 6 WEEKS EVERY 8 WEEKS
     Route: 042
     Dates: start: 20200901
  3. INFLECTRA [Suspect]
     Active Substance: INFLIXIMAB-DYYB
     Dosage: 400 MG  2, 6 WEEKS EVERY 8 WEEKS
     Route: 042
     Dates: start: 20200929
  4. INFLECTRA [Suspect]
     Active Substance: INFLIXIMAB-DYYB
     Dosage: 400 MG  2, 6 WEEKS EVERY 8 WEEKS
     Route: 042
     Dates: start: 20201124
  5. INFLECTRA [Suspect]
     Active Substance: INFLIXIMAB-DYYB
     Dosage: 400 MG  0, 2, 6 WEEKS EVERY 8 WEEKS
     Route: 042
     Dates: start: 20210120
  6. INFLECTRA [Suspect]
     Active Substance: INFLIXIMAB-DYYB
     Dosage: 400 MG  0, 2, 6 WEEKS EVERY 8 WEEKS
     Route: 042
     Dates: start: 20210708
  7. INFLECTRA [Suspect]
     Active Substance: INFLIXIMAB-DYYB
     Dosage: 400 MG  0, 2, 6 WEEKS EVERY 8 WEEKS
     Route: 042
     Dates: start: 20210901
  8. INFLECTRA [Suspect]
     Active Substance: INFLIXIMAB-DYYB
     Dosage: 400 MG  0, 2, 6 WEEKS EVERY 8 WEEKS
     Route: 042
     Dates: start: 20211027
  9. INFLECTRA [Suspect]
     Active Substance: INFLIXIMAB-DYYB
     Dosage: 400 MG  0, 2, 6 WEEKS EVERY 8 WEEKS
     Route: 042
     Dates: start: 20211221
  10. INFLECTRA [Suspect]
     Active Substance: INFLIXIMAB-DYYB
     Dosage: 400 MG  0, 2, 6 WEEKS EVERY 8 WEEKS
     Route: 042
     Dates: start: 20220216
  11. INFLECTRA [Suspect]
     Active Substance: INFLIXIMAB-DYYB
     Dosage: 400 MG 0, 2, 6 WEEKS EVERY 8 WEEKS
     Route: 042
     Dates: start: 20220430
  12. INFLECTRA [Suspect]
     Active Substance: INFLIXIMAB-DYYB
     Dosage: 400 MG  0, 2, 6 WEEKS EVERY 8 WEEKS
     Route: 042
     Dates: start: 20220625
  13. INFLECTRA [Suspect]
     Active Substance: INFLIXIMAB-DYYB
     Dosage: 400 MG 0, 2, 6 WEEKS EVERY 8 WEEKS
     Route: 042
     Dates: start: 20220816
  14. INFLECTRA [Suspect]
     Active Substance: INFLIXIMAB-DYYB
     Dosage: 400 MG 0, 2, 6 WEEKS EVERY 8 WEEKS
     Route: 042
     Dates: start: 20221011, end: 20221011
  15. INFLECTRA [Suspect]
     Active Substance: INFLIXIMAB-DYYB
     Dosage: 400 MG 0, 2, 6 WEEKS EVERY 8 WEEKS
     Route: 042
     Dates: start: 20221227
  16. INFLECTRA [Suspect]
     Active Substance: INFLIXIMAB-DYYB
     Dosage: 400 MG 0, 2, 6 WEEKS EVERY 8 WEEKS
     Route: 042
     Dates: start: 20230222
  17. INFLECTRA [Suspect]
     Active Substance: INFLIXIMAB-DYYB
     Dosage: 400 MG, EVERY 8 WEEKS
     Route: 042
     Dates: start: 20230418
  18. INFLECTRA [Suspect]
     Active Substance: INFLIXIMAB-DYYB
     Dosage: 400 MG
     Route: 042
     Dates: start: 20230613

REACTIONS (10)
  - Hypothermia [Unknown]
  - Drug level decreased [Unknown]
  - Inappropriate schedule of product administration [Unknown]
  - Intentional product use issue [Unknown]
  - Off label use [Unknown]
  - Off label use [Unknown]
  - Condition aggravated [Recovering/Resolving]
  - COVID-19 [Recovered/Resolved]
  - Malaise [Not Recovered/Not Resolved]
  - Influenza [Recovered/Resolved]

NARRATIVE: CASE EVENT DATE: 20200817
